FAERS Safety Report 23588381 (Version 1)
Quarter: 2024Q1

REPORT INFORMATION
  Report Type: Spontaneous
  Country: CA (occurrence: CA)
  Receive Date: 20240302
  Receipt Date: 20240302
  Transmission Date: 20240410
  Serious: Yes (Other)
  Sender: FDA-Public Use
  Company Number: CA-ORGANON-O2310CAN000939

PATIENT
  Age: 34 Year
  Sex: Female

DRUGS (1)
  1. NEXPLANON [Suspect]
     Active Substance: ETONOGESTREL
     Indication: Product used for unknown indication
     Dosage: 1 IMPLANT
     Route: 059
     Dates: start: 20230825

REACTIONS (3)
  - Device dislocation [Not Recovered/Not Resolved]
  - Device issue [Not Recovered/Not Resolved]
  - Complication associated with device [Not Recovered/Not Resolved]

NARRATIVE: CASE EVENT DATE: 20230101
